FAERS Safety Report 7544226-7 (Version None)
Quarter: 2011Q2

REPORT INFORMATION
  Report Type: 
  Country: None (occurrence: None)
  Receive Date: 20110613
  Receipt Date: 20070604
  Transmission Date: 20111010
  Serious: Yes (Death)
  Sender: FDA-Public Use
  Company Number: PHHO2006KR07243

PATIENT
  Sex: Male

DRUGS (2)
  1. TRILEPTAL [Suspect]
     Indication: PARTIAL SEIZURES
     Dosage: 600 MG, UNK
     Route: 048
     Dates: start: 20040204
  2. VIGABATRIN [Concomitant]
     Indication: CONVULSION

REACTIONS (1)
  - DEATH [None]
